FAERS Safety Report 7204012-4 (Version None)
Quarter: 2010Q4

REPORT INFORMATION
  Report Type: 
  Country: None (occurrence: None)
  Receive Date: 20101230
  Receipt Date: 20101215
  Transmission Date: 20110411
  Serious: Yes (Hospitalization, Other)
  Sender: FDA-Public Use
  Company Number: PHHY2010GB85767

PATIENT
  Sex: Female

DRUGS (3)
  1. AMIODARONE [Interacting]
  2. METOPROLOL TARTRATE [Suspect]
     Indication: TACHYARRHYTHMIA
     Dosage: 25 MG, UNK
     Route: 048
  3. WARFARIN [Concomitant]
     Indication: PULMONARY EMBOLISM
     Dosage: UNK

REACTIONS (12)
  - BRADYCARDIA [None]
  - CARDIAC ARREST [None]
  - CARDIAC FAILURE CONGESTIVE [None]
  - CARDIOMEGALY [None]
  - CARDIOVASCULAR INSUFFICIENCY [None]
  - DRUG INTERACTION [None]
  - ELECTROCARDIOGRAM T WAVE INVERSION [None]
  - HYPOXIA [None]
  - METABOLIC ACIDOSIS [None]
  - OXYGEN SATURATION DECREASED [None]
  - RESPIRATORY ALKALOSIS [None]
  - SUPRAVENTRICULAR TACHYCARDIA [None]
